FAERS Safety Report 9320590 (Version 3)
Quarter: 2013Q3

REPORT INFORMATION
  Report Type: Report from Study
  Country: BR (occurrence: BR)
  Receive Date: 20130531
  Receipt Date: 20130716
  Transmission Date: 20140515
  Serious: Yes (Hospitalization)
  Sender: FDA-Public Use
  Company Number: BR-ROCHE-1229418

PATIENT
  Sex: Female
  Weight: 72 kg

DRUGS (1)
  1. MABTHERA [Suspect]
     Indication: RHEUMATOID ARTHRITIS
     Route: 042
     Dates: start: 201111

REACTIONS (4)
  - Calcinosis [Recovering/Resolving]
  - Back disorder [Unknown]
  - Impaired healing [Recovered/Resolved]
  - Therapeutic response decreased [Unknown]
